FAERS Safety Report 13077185 (Version 1)
Quarter: 2016Q4

REPORT INFORMATION
  Report Type: Spontaneous
  Country: US (occurrence: US)
  Receive Date: 20161230
  Receipt Date: 20161230
  Transmission Date: 20170207
  Serious: No
  Sender: FDA-Public Use
  Company Number: US-DRREDDYS-DRL/USA/16/0078372

PATIENT
  Age: 66 Year
  Sex: Female

DRUGS (4)
  1. HABITROL [Suspect]
     Active Substance: NICOTINE
     Route: 065
  2. HABITROL [Suspect]
     Active Substance: NICOTINE
     Route: 062
  3. HABITROL [Suspect]
     Active Substance: NICOTINE
     Route: 065
  4. HABITROL [Suspect]
     Active Substance: NICOTINE
     Indication: SMOKING CESSATION THERAPY
     Route: 065

REACTIONS (4)
  - Nervousness [Not Recovered/Not Resolved]
  - Drug ineffective [Unknown]
  - Product quality issue [Unknown]
  - Nicotine dependence [Not Recovered/Not Resolved]
